FAERS Safety Report 7943099-8 (Version None)
Quarter: 2011Q4

REPORT INFORMATION
  Report Type: 
  Country: None (occurrence: None)
  Receive Date: 20111128
  Receipt Date: 20111115
  Transmission Date: 20120403
  Serious: Yes (Hospitalization)
  Sender: FDA-Public Use
  Company Number: PHHO2011DE18007

PATIENT
  Sex: Male
  Weight: 81.7 kg

DRUGS (4)
  1. MYFORTIC [Suspect]
     Indication: RENAL TRANSPLANT
     Dosage: 1440 MG, UNK
     Route: 048
     Dates: start: 20110809, end: 20111024
  2. PREDNISONE [Suspect]
     Indication: RENAL TRANSPLANT
     Dosage: 7.5 MG, UNK
     Route: 048
     Dates: start: 20110809
  3. RAD 666 [Suspect]
     Indication: RENAL TRANSPLANT
     Dosage: 3 MG, UNK
     Route: 048
     Dates: start: 20110928, end: 20111024
  4. SANDIMMUNE [Concomitant]
     Indication: RENAL TRANSPLANT

REACTIONS (2)
  - CROHN'S DISEASE [None]
  - ILEUS PARALYTIC [None]
